FAERS Safety Report 8919575 (Version 1)
Quarter: 2012Q4

REPORT INFORMATION
  Report Type: 
  Country: US (occurrence: US)
  Receive Date: 20121121
  Receipt Date: 20121121
  Transmission Date: 20130627
  Serious: Yes (Other)
  Sender: FDA-Public Use
  Company Number: US-009507513-1211USA007823

PATIENT
  Age: 25 Year
  Sex: Female

DRUGS (3)
  1. EPTIFIBATIDE [Suspect]
     Dosage: 180 Microgram per kilogram, Once
     Route: 040
  2. EPTIFIBATIDE [Suspect]
     Dosage: UNK Microgram per kilogram, UNK
     Route: 042
  3. HEPARIN [Concomitant]
     Indication: THROMBOSIS IN DEVICE

REACTIONS (2)
  - Gastrointestinal haemorrhage [Recovered/Resolved]
  - Gastrointestinal mucosal disorder [Unknown]
